FAERS Safety Report 9672183 (Version 1)
Quarter: 2013Q4

REPORT INFORMATION
  Report Type: Spontaneous
  Country: JP (occurrence: None)
  Receive Date: 20131105
  Receipt Date: 20131105
  Transmission Date: 20140711
  Serious: Yes (Other)
  Sender: FDA-Public Use
  Company Number: COR_00026_2013

PATIENT
  Age: 15 Year
  Sex: Female

DRUGS (4)
  1. ETOPOSIDE (ETOPOSIDE) [Suspect]
     Indication: ALVEOLAR RHABDOMYOSARCOMA
     Dosage: FOR 5 DAYS
     Route: 042
  2. IFOSFAMIDE (IFOSFAMIDE) [Suspect]
     Indication: ALVEOLAR RHABDOMYOSARCOMA
     Dosage: FOR 5 DAYS
     Route: 042
  3. ACTINOMYCIN D [Suspect]
     Indication: ALVEOLAR RHABDOMYOSARCOMA
     Dosage: FOR 5 DAYS
     Route: 042
  4. VINCRISTINE [Concomitant]
     Indication: ALVEOLAR RHABDOMYOSARCOMA
     Dosage: ON DAYS 1 AND 8
     Route: 042

REACTIONS (11)
  - Pyrexia [None]
  - Myalgia [None]
  - Chromaturia [None]
  - Altered state of consciousness [None]
  - Respiratory failure [None]
  - Renal failure acute [None]
  - Hepatic function abnormal [None]
  - Disseminated intravascular coagulation [None]
  - Continuous haemodiafiltration [None]
  - Rhabdomyolysis [None]
  - Infection [None]
